FAERS Safety Report 10034810 (Version 1)
Quarter: 2014Q1

REPORT INFORMATION
  Report Type: Spontaneous
  Country: US (occurrence: None)
  Receive Date: 20140306
  Receipt Date: 20140306
  Transmission Date: 20141002
  Serious: Yes (Other)
  Sender: FDA-Public Use
  Company Number: 163-21880-13032694

PATIENT
  Age: 71 Year
  Sex: Male
  Weight: 63.87 kg

DRUGS (14)
  1. REVLIMID [Suspect]
     Indication: PLASMA CELL MYELOMA
     Dosage: 25 MG, 14 IN 14 D, PO
     Route: 048
     Dates: start: 20130218, end: 20130310
  2. BORTEZOMIB (BORTEZOMIB) [Concomitant]
  3. DEXAMETHASONE (DEXAMETHASONE) [Concomitant]
  4. COUMADIN (WARFARIN SODIUM) [Concomitant]
  5. METOPROLOL (METOPROLOL) [Concomitant]
  6. GABAPENTIN (GABAPENTIN) [Concomitant]
  7. B 12 (CYANOCOBALAMIN) [Concomitant]
  8. ZOMETA (ZOLEDRONIC ACID) [Concomitant]
  9. LORATADINE (LORATADINE) [Concomitant]
  10. NEXIUM (ESOMEPRAZOLE) [Concomitant]
  11. VICODIN (VICODIN) [Concomitant]
  12. FLUOXETINE (FLUOXETINE) [Concomitant]
  13. FERROUS SULFATE (FERROUS SULFATE) [Concomitant]
  14. BACLOFEN (BACLOFEN) [Concomitant]

REACTIONS (2)
  - Renal failure [None]
  - Glomerular filtration rate decreased [None]
